FAERS Safety Report 23018956 (Version 1)
Quarter: 2023Q4

REPORT INFORMATION
  Report Type: Spontaneous
  Country: US (occurrence: US)
  Receive Date: 20231003
  Receipt Date: 20231003
  Transmission Date: 20240110
  Serious: Yes (Life-Threatening, Hospitalization)
  Sender: FDA-Public Use
  Company Number: US-NOVOPROD-1122069

PATIENT
  Sex: Female

DRUGS (1)
  1. OZEMPIC [Suspect]
     Active Substance: SEMAGLUTIDE
     Indication: Product used for unknown indication
     Dosage: 0.25 MG, QW
     Route: 058

REACTIONS (8)
  - Cerebrovascular accident [Unknown]
  - Hepatic enzyme decreased [Unknown]
  - Blood pressure decreased [Unknown]
  - Renal disorder [Unknown]
  - Dehydration [Unknown]
  - Blood glucose decreased [Unknown]
  - Sleep apnoea syndrome [Unknown]
  - Hypoaesthesia [Unknown]
